FAERS Safety Report 15068266 (Version 4)
Quarter: 2019Q1

REPORT INFORMATION
  Report Type: Report from Study
  Country: CA (occurrence: CA)
  Receive Date: 20180626
  Receipt Date: 20190103
  Transmission Date: 20190417
  Serious: Yes (Hospitalization)
  Sender: FDA-Public Use
  Company Number: CA-JNJFOC-20180630181

PATIENT
  Age: 38 Year
  Sex: Male

DRUGS (3)
  1. COUMADIN [Concomitant]
     Active Substance: WARFARIN SODIUM
     Indication: PHLEBITIS
     Route: 065
     Dates: start: 201805
  2. STELARA [Suspect]
     Active Substance: USTEKINUMAB
     Indication: PSORIASIS
     Dosage: STRENGTH = 90 MG
     Route: 058
     Dates: start: 20160701
  3. COUMADIN [Concomitant]
     Active Substance: WARFARIN SODIUM
     Indication: PULMONARY EMBOLISM
     Route: 065
     Dates: start: 201805

REACTIONS (5)
  - Psoriasis [Unknown]
  - Spondylitis [Unknown]
  - Sepsis [Unknown]
  - Pulmonary embolism [Not Recovered/Not Resolved]
  - Phlebitis [Unknown]

NARRATIVE: CASE EVENT DATE: 20180615
